FAERS Safety Report 14620572 (Version 1)
Quarter: 2018Q1

REPORT INFORMATION
  Report Type: Spontaneous
  Country: FI (occurrence: FI)
  Receive Date: 20180309
  Receipt Date: 20180309
  Transmission Date: 20180509
  Serious: Yes (Hospitalization)
  Sender: FDA-Public Use
  Company Number: FI-ELI_LILLY_AND_COMPANY-FI201802011855

PATIENT
  Age: 55 Year
  Sex: Female

DRUGS (7)
  1. LEVOMEPROMAZINE ORION [Concomitant]
     Dosage: 5 MG, DAILY
     Route: 048
  2. EVOREL CONTI [Concomitant]
     Dosage: UNK
     Route: 062
  3. CYMBALTA [Suspect]
     Active Substance: DULOXETINE HYDROCHLORIDE
     Indication: FIBROMYALGIA
     Dosage: 30 MG, DAILY
     Route: 048
     Dates: start: 20171105, end: 20171118
  4. PANADOL FORTE                      /00020001/ [Concomitant]
     Dosage: UNK UNK, PRN
     Route: 048
  5. SIMVASTATIN ORION [Concomitant]
     Active Substance: SIMVASTATIN
     Dosage: 10,MG,DAILY
     Route: 048
  6. THYROXIN [Concomitant]
     Active Substance: LEVOTHYROXINE
     Dosage: UNK
     Route: 048
  7. XANOR [Concomitant]
     Active Substance: ALPRAZOLAM
     Dosage: 0.5 MG, DAILY

REACTIONS (6)
  - Gamma-glutamyltransferase increased [Not Recovered/Not Resolved]
  - Alanine aminotransferase increased [Not Recovered/Not Resolved]
  - Nausea [Not Recovered/Not Resolved]
  - Vomiting [Not Recovered/Not Resolved]
  - Malaise [Not Recovered/Not Resolved]
  - Blood alkaline phosphatase increased [Not Recovered/Not Resolved]

NARRATIVE: CASE EVENT DATE: 20171117
